FAERS Safety Report 4666911-7 (Version None)
Quarter: 2005Q2

REPORT INFORMATION
  Report Type: 
  Country: None (occurrence: None)
  Receive Date: 20050518
  Receipt Date: 20040423
  Transmission Date: 20051028
  Serious: Yes (Other)
  Sender: FDA-Public Use
  Company Number: 2004209656US

PATIENT
  Age: 25 Year
  Sex: Female

DRUGS (1)
  1. DEPO-PROVERA [Suspect]
     Dosage: 150 MG EVERY 3 MONTHS, 1ST INJ., INTRAMUSCULAR
     Route: 030
     Dates: start: 20040302, end: 20040302

REACTIONS (5)
  - ABDOMINAL PAIN [None]
  - BACK PAIN [None]
  - HYPOAESTHESIA [None]
  - MENORRHAGIA [None]
  - VAGINAL CYST [None]
